FAERS Safety Report 8392750-X (Version None)
Quarter: 2012Q2

REPORT INFORMATION
  Report Type: 
  Country: None (occurrence: None)
  Receive Date: 20120529
  Receipt Date: 20110505
  Transmission Date: 20120825
  Serious: No
  Sender: FDA-Public Use
  Company Number: US-MYLANLABS-2011S1009510

PATIENT
  Age: 70 Year
  Sex: Female

DRUGS (7)
  1. AMITRIPTYLINE HCL [Suspect]
  2. VITAMIN D [Concomitant]
  3. METFORMIN HCL [Suspect]
  4. VITAMIN C [Concomitant]
  5. GENTEAL /03186201/ [Concomitant]
     Route: 031
  6. PRED FORTE [Concomitant]
  7. ASPIRIN [Concomitant]

REACTIONS (2)
  - DRY EYE [None]
  - DRY SKIN [None]
